FAERS Safety Report 9087223 (Version 4)
Quarter: 2013Q1

REPORT INFORMATION
  Report Type: Spontaneous
  Country: US (occurrence: US)
  Receive Date: 20130130
  Receipt Date: 20130306
  Transmission Date: 20140127
  Serious: No
  Sender: FDA-Public Use
  Company Number: US-009507513-1301USA011311

PATIENT
  Age: 54 Year
  Sex: Female
  Weight: 80.3 kg

DRUGS (8)
  1. VICTRELIS [Suspect]
     Indication: CHRONIC HEPATITIS C
     Dosage: 800 MG, TID
     Route: 048
     Dates: start: 20121222, end: 20121222
  2. RIBASPHERE [Suspect]
     Dosage: 600 MG, BID
     Route: 048
  3. RIBASPHERE [Suspect]
     Dosage: 2 DF, DAILY
     Route: 048
     Dates: start: 20130128, end: 20130203
  4. PEGASYS [Suspect]
     Dosage: 180 MICROGRAM, QW
     Route: 058
  5. KENALOG [Concomitant]
     Dosage: 10 MG/ML
  6. MOBIC [Concomitant]
     Dosage: VIALMOBIC
  7. SINGULAIR [Concomitant]
  8. ALLEGRA [Concomitant]

REACTIONS (21)
  - Pruritus [Unknown]
  - Swelling face [Not Recovered/Not Resolved]
  - Blood count abnormal [Unknown]
  - Hypoaesthesia oral [Not Recovered/Not Resolved]
  - Paraesthesia oral [Unknown]
  - Hypoaesthesia [Unknown]
  - Paraesthesia [Unknown]
  - Local swelling [Not Recovered/Not Resolved]
  - Abdominal pain upper [Unknown]
  - Dysgeusia [Not Recovered/Not Resolved]
  - Laboratory test abnormal [Unknown]
  - Fatigue [Not Recovered/Not Resolved]
  - Abdominal pain upper [Unknown]
  - Nausea [Unknown]
  - Dysgeusia [Unknown]
  - Headache [Unknown]
  - Joint swelling [Not Recovered/Not Resolved]
  - Gait disturbance [Not Recovered/Not Resolved]
  - Tongue ulceration [Not Recovered/Not Resolved]
  - Stomatitis [Not Recovered/Not Resolved]
  - Decreased appetite [Not Recovered/Not Resolved]
